FAERS Safety Report 5601542-3 (Version None)
Quarter: 2008Q1

REPORT INFORMATION
  Report Type: 
  Country: None (occurrence: None)
  Receive Date: 20080124
  Receipt Date: 20080115
  Transmission Date: 20080703
  Serious: Yes (Hospitalization, Other)
  Sender: FDA-Public Use
  Company Number: GR-ABBOTT-08P-066-0433469-00

PATIENT
  Age: 75 Year
  Sex: Female
  Weight: 58.5 kg

DRUGS (16)
  1. ZEMPLAR [Suspect]
     Indication: HYPERPARATHYROIDISM SECONDARY
     Route: 042
     Dates: start: 20070517
  2. CALCIUM CARBONATE [Concomitant]
     Indication: HYPERPHOSPHATAEMIA
     Route: 048
     Dates: start: 20071001
  3. CLOPIDOGREL [Concomitant]
     Indication: ANTICOAGULANT THERAPY
     Route: 048
     Dates: start: 20061215
  4. HEPARIN-FRACTION, SODIUM SALT [Concomitant]
     Indication: ANTICOAGULANT THERAPY
     Route: 042
     Dates: start: 20050330
  5. DARBEPOETIN ALFA [Concomitant]
     Indication: ANAEMIA
     Route: 042
     Dates: start: 20050330
  6. SACCHARATED IRON OXIDE [Concomitant]
     Indication: ANAEMIA
     Route: 042
     Dates: start: 20050330
  7. SUPERAMINE [Concomitant]
     Indication: RENAL FAILURE CHRONIC
     Route: 042
     Dates: start: 20050330
  8. NEUROBION [Concomitant]
     Indication: RENAL FAILURE CHRONIC
     Route: 042
     Dates: start: 20050330
  9. FOLIC ACID [Concomitant]
     Indication: ANAEMIA
     Route: 048
     Dates: start: 20050404
  10. AMIODARONE HCL [Concomitant]
     Indication: ARRHYTHMIA
     Route: 048
     Dates: start: 20071001
  11. OMEPRAZOLE [Concomitant]
     Indication: GASTRITIS PROPHYLAXIS
     Route: 048
     Dates: start: 20060115, end: 20071201
  12. MYACALCIC [Concomitant]
     Indication: OSTEOPOROSIS
     Route: 045
     Dates: start: 20060215, end: 20070701
  13. ALENDRONATE SODIUM [Concomitant]
     Indication: OSTEOPOROSIS
     Route: 048
     Dates: start: 20060215, end: 20070701
  14. SODIUM POLYSTYRENE SULFONATE [Concomitant]
     Indication: HYPERKALAEMIA
     Route: 048
     Dates: start: 20061015
  15. SIMVASTATIN [Concomitant]
     Indication: HYPERLIPIDAEMIA
     Route: 048
     Dates: start: 20070115
  16. CINACALCET [Concomitant]
     Indication: HYPERPARATHYROIDISM SECONDARY
     Route: 048
     Dates: start: 20070215, end: 20071201

REACTIONS (3)
  - CHEST PAIN [None]
  - OSTEOPOROTIC FRACTURE [None]
  - RESPIRATORY TRACT INFECTION VIRAL [None]
